FAERS Safety Report 5674036-7 (Version None)
Quarter: 2008Q1

REPORT INFORMATION
  Report Type: 
  Country: None (occurrence: None)
  Receive Date: 20080319
  Receipt Date: 20080319
  Transmission Date: 20080703
  Serious: Yes (Hospitalization)
  Sender: FDA-Public Use
  Company Number: None

PATIENT
  Age: 68 Year
  Sex: Female
  Weight: 68 kg

DRUGS (8)
  1. HYDROMORPHONE HCL [Suspect]
     Indication: METASTATIC PAIN
     Dosage: 1.4 MG PER HR IV  CHRONIC, DOSE CHANGE RECENT
     Route: 042
  2. BACLOFEN [Suspect]
     Dosage: 10MG TID PO
     Route: 048
  3. GABAPENTIN [Concomitant]
  4. SYNTHROID [Concomitant]
  5. DIOVAN HCT [Concomitant]
  6. MIRALAX [Concomitant]
  7. COLACE [Concomitant]
  8. MORPHINE [Concomitant]

REACTIONS (2)
  - ACCIDENTAL OVERDOSE [None]
  - UNRESPONSIVE TO STIMULI [None]
